FAERS Safety Report 10979051 (Version 1)
Quarter: 2015Q1

REPORT INFORMATION
  Report Type: Spontaneous
  Country: US (occurrence: None)
  Receive Date: 20150227
  Receipt Date: 20150227
  Transmission Date: 20150721
  Serious: Yes (Other)
  Sender: FDA-Public Use
  Company Number: OMPQ-PR-1402S-0176

PATIENT
  Age: 74 Year
  Sex: Female
  Weight: 68.04 kg

DRUGS (12)
  1. OMNIPAQUE [Suspect]
     Active Substance: IOHEXOL
     Indication: POLLAKIURIA
     Route: 042
     Dates: start: 20140219, end: 20140219
  2. SYNTHROID [Concomitant]
     Active Substance: LEVOTHYROXINE SODIUM
  3. OMNIPAQUE [Suspect]
     Active Substance: IOHEXOL
     Indication: URINARY TRACT INFECTION
     Route: 042
     Dates: start: 20140219, end: 20140219
  4. OMNIPAQUE [Suspect]
     Active Substance: IOHEXOL
     Indication: DIAGNOSTIC PROCEDURE
     Route: 042
     Dates: start: 20140219, end: 20140219
  5. CENTRUM PRFORMANCE (CENTRUM PERFORMANCE) [Concomitant]
  6. NYTROGLYCERIN (GLYCERYL TRINITRATE) [Concomitant]
  7. XANAX [Concomitant]
     Active Substance: ALPRAZOLAM
  8. ECOTRIN [Concomitant]
     Active Substance: ASPIRIN
  9. METOPROLOL TARTRATE (METOPROLOL TARTRATE) [Concomitant]
  10. CRANBERRY (VACCINIUM MACROCARPON) [Concomitant]
  11. DILTIAZEM HCL [Concomitant]
     Active Substance: DILTIAZEM HYDROCHLORIDE
  12. PRILOSEC (OMEPRAZOLE) [Concomitant]
     Active Substance: OMEPRAZOLE MAGNESIUM

REACTIONS (2)
  - Drug hypersensitivity [None]
  - Chest pain [None]

NARRATIVE: CASE EVENT DATE: 20140219
